FAERS Safety Report 6912440-7 (Version None)
Quarter: 2010Q3

REPORT INFORMATION
  Report Type: 
  Country: None (occurrence: None)
  Receive Date: 20100806
  Receipt Date: 20080529
  Transmission Date: 20110219
  Serious: No
  Sender: FDA-Public Use
  Company Number: US-PFIZER INC-2008046036

PATIENT
  Sex: Female
  Weight: 48.08 kg

DRUGS (3)
  1. DILANTIN [Suspect]
     Indication: CONVULSION PROPHYLAXIS
     Route: 048
     Dates: start: 19990101
  2. MULTI-VITAMINS [Concomitant]
  3. FOLTX [Concomitant]

REACTIONS (2)
  - BALANCE DISORDER [None]
  - GAIT DISTURBANCE [None]
